FAERS Safety Report 4472743-5 (Version None)
Quarter: 2004Q4

REPORT INFORMATION
  Report Type: 
  Country: None (occurrence: None)
  Receive Date: 20041008
  Receipt Date: 20040921
  Transmission Date: 20050328
  Serious: Yes (Other)
  Sender: FDA-Public Use
  Company Number: JP_040904568

PATIENT
  Age: 70 Year
  Sex: Male

DRUGS (1)
  1. GEMZAR [Suspect]
     Indication: LUNG NEOPLASM MALIGNANT

REACTIONS (1)
  - PULMONARY ALVEOLAR HAEMORRHAGE [None]
